FAERS Safety Report 5113523-7 (Version None)
Quarter: 2006Q3

REPORT INFORMATION
  Report Type: 
  Country: None (occurrence: None)
  Receive Date: 20060920
  Receipt Date: 20060914
  Transmission Date: 20061208
  Serious: Yes (Hospitalization)
  Sender: FDA-Public Use
  Company Number: URSO-2005-070

PATIENT
  Age: 73 Year
  Sex: Male

DRUGS (5)
  1. URSODIOL [Suspect]
     Indication: BILIARY CIRRHOSIS PRIMARY
     Dosage: SEE IMAGE
     Route: 048
     Dates: start: 20010808, end: 20010927
  2. URSODIOL [Suspect]
     Indication: BILIARY CIRRHOSIS PRIMARY
     Dosage: SEE IMAGE
     Route: 048
     Dates: start: 20011101, end: 20020429
  3. URSODIOL [Suspect]
     Indication: BILIARY CIRRHOSIS PRIMARY
     Dosage: SEE IMAGE
     Route: 048
     Dates: start: 20020430, end: 20041206
  4. AMLODIPINE BESYLATE [Concomitant]
  5. BEZAFIBRATE (BEZATOL) [Concomitant]

REACTIONS (3)
  - BILE DUCT STONE [None]
  - CHOLELITHIASIS [None]
  - JAUNDICE CHOLESTATIC [None]
